FAERS Safety Report 8377277-3 (Version None)
Quarter: 2012Q2

REPORT INFORMATION
  Report Type: 
  Country: None (occurrence: None)
  Receive Date: 20120522
  Receipt Date: 20120515
  Transmission Date: 20120825
  Serious: Yes (Death)
  Sender: FDA-Public Use
  Company Number: TW-PFIZER INC-2012119541

PATIENT
  Age: 40 Year
  Sex: Female

DRUGS (1)
  1. TEMSIROLIMUS [Suspect]
     Indication: METASTATIC RENAL CELL CARCINOMA

REACTIONS (7)
  - ANAEMIA [None]
  - COUGH [None]
  - DECREASED APPETITE [None]
  - HYPERLIPIDAEMIA [None]
  - DEATH [None]
  - LEUKOPENIA [None]
  - MALAISE [None]
